FAERS Safety Report 17565688 (Version 1)
Quarter: 2020Q1

REPORT INFORMATION
  Report Type: Spontaneous
  Country: TR (occurrence: TR)
  Receive Date: 20200320
  Receipt Date: 20200320
  Transmission Date: 20200409
  Serious: Yes (Death, Hospitalization)
  Sender: FDA-Public Use
  Company Number: TR-MYLANLABS-2020M1029253

PATIENT
  Age: 29 Year
  Sex: Male

DRUGS (2)
  1. CLOZAPINE. [Suspect]
     Active Substance: CLOZAPINE
     Indication: SCHIZOPHRENIA
     Dosage: 2 X 100MG
     Route: 065
  2. CLOZAPINE. [Suspect]
     Active Substance: CLOZAPINE
     Dosage: 100 MILLIGRAM, BID
     Route: 065

REACTIONS (6)
  - Cardiac arrest [Fatal]
  - Intestinal pseudo-obstruction [Fatal]
  - Metabolic acidosis [Fatal]
  - Intestinal ischaemia [Fatal]
  - Septic shock [Fatal]
  - Respiratory distress [Fatal]
